FAERS Safety Report 5788248-5 (Version None)
Quarter: 2008Q2

REPORT INFORMATION
  Report Type: 
  Country: None (occurrence: None)
  Receive Date: 20080623
  Receipt Date: 20080606
  Transmission Date: 20081010
  Serious: Yes (Hospitalization)
  Sender: FDA-Public Use
  Company Number: 440011M08USA

PATIENT

DRUGS (1)
  1. SEROSTIM [Suspect]
     Indication: CACHEXIA

REACTIONS (3)
  - IMPAIRED GASTRIC EMPTYING [None]
  - NEUROPATHY PERIPHERAL [None]
  - WEIGHT DECREASED [None]
